FAERS Safety Report 10652331 (Version 1)
Quarter: 2014Q4

REPORT INFORMATION
  Report Type: Spontaneous
  Country: US (occurrence: None)
  Receive Date: 20141212
  Receipt Date: 20141212
  Transmission Date: 20150529
  Serious: Yes (Life-Threatening)
  Sender: FDA-Public Use
  Company Number: None

PATIENT
  Age: 80 Year
  Sex: Female
  Weight: 95.26 kg

DRUGS (7)
  1. XARELTO [Suspect]
     Active Substance: RIVAROXABAN
     Indication: COAGULOPATHY
  2. PRADAXA [Suspect]
     Active Substance: DABIGATRAN ETEXILATE MESYLATE
     Indication: COAGULOPATHY
     Dosage: DR. HAS RECORDS, 1 DAILY, BY MOUTH
     Route: 048
     Dates: start: 2013
  3. ALEVE [Concomitant]
     Active Substance: NAPROXEN SODIUM
  4. BENICAR [Suspect]
     Active Substance: OLMESARTAN MEDOXOMIL
     Indication: BLOOD PRESSURE INCREASED
     Dosage: 1 PER DAY 40MG?
  5. ELIQUIS [Concomitant]
     Active Substance: APIXABAN
  6. DIOXN [Concomitant]
  7. CENTRUM SILVER [Concomitant]
     Active Substance: VITAMINS

REACTIONS (4)
  - Blood urine present [None]
  - Colitis [None]
  - Diarrhoea [None]
  - Hepatic steatosis [None]

NARRATIVE: CASE EVENT DATE: 201301
